FAERS Safety Report 5601802-6 (Version None)
Quarter: 2008Q1

REPORT INFORMATION
  Report Type: 
  Country: None (occurrence: None)
  Receive Date: 20080124
  Receipt Date: 20080118
  Transmission Date: 20080703
  Serious: Yes (Other)
  Sender: FDA-Public Use
  Company Number: JP-GILEAD-E2B_00000055

PATIENT
  Age: 60 Year
  Sex: Male

DRUGS (6)
  1. HEPSERA [Suspect]
     Indication: HEPATITIS B
     Dosage: 10MG PER DAY
     Route: 048
     Dates: start: 20060816, end: 20071025
  2. ZEFIX [Suspect]
     Route: 048
     Dates: start: 20040414, end: 20071025
  3. GASTER D [Concomitant]
     Route: 048
  4. BIOFERMIN [Concomitant]
     Route: 048
  5. URSO 250 [Concomitant]
     Route: 048
  6. AMINOLEBAN [Concomitant]
     Route: 065

REACTIONS (3)
  - BLOOD CREATINE PHOSPHOKINASE INCREASED [None]
  - HEPATIC FAILURE [None]
  - HYPERCHOLESTEROLAEMIA [None]
